FAERS Safety Report 18786674 (Version 2)
Quarter: 2021Q1

REPORT INFORMATION
  Report Type: Report from Study
  Country: US (occurrence: US)
  Receive Date: 20210126
  Receipt Date: 20210203
  Transmission Date: 20210419
  Serious: Yes (Death)
  Sender: FDA-Public Use
  Company Number: US-ROCHE-2756453

PATIENT
  Age: 75 Year
  Sex: Male
  Weight: 86.8 kg

DRUGS (3)
  1. OBINUTUZUMAB. [Suspect]
     Active Substance: OBINUTUZUMAB
     Indication: B-CELL LYMPHOMA
     Dosage: DATE OF LAST DOSE: 03?FEB?2020, LAST CYCLE NO: MAINT C10, DOSE NOT CHANGED
     Route: 042
     Dates: start: 20171227
  2. VENETOCLAX. [Suspect]
     Active Substance: VENETOCLAX
     Indication: B-CELL LYMPHOMA
     Dosage: DATE OF LAST DOSE: 21?APR?2018, LAST CYCLE NO: C5D6, DOSE NOT CHANGED
     Route: 048
     Dates: start: 20171227
  3. BENDAMUSTINE [Suspect]
     Active Substance: BENDAMUSTINE
     Indication: B-CELL LYMPHOMA
     Dosage: DATE OF LAST DOSE: 15?MAY?2018 (165 MG), LAST CYCLE NO: C6D2, DOSE NOT CHANGED
     Route: 042
     Dates: start: 20171227

REACTIONS (2)
  - Acute respiratory failure [Fatal]
  - COVID-19 [Fatal]

NARRATIVE: CASE EVENT DATE: 20210112
